FAERS Safety Report 4310583-8 (Version None)
Quarter: 2004Q1

REPORT INFORMATION
  Report Type: 
  Country: None (occurrence: None)
  Receive Date: 20040303
  Receipt Date: 20040220
  Transmission Date: 20041129
  Serious: Yes (Hospitalization)
  Sender: FDA-Public Use
  Company Number: BR-BRISTOL-MYERS SQUIBB COMPANY-12522827

PATIENT
  Age: 73 Year
  Sex: Male

DRUGS (9)
  1. BLINDED: IRBESARTAN [Suspect]
     Indication: CARDIAC FAILURE
     Dosage: 20-DEC-02 TO 05-JAN-03 75 MG. 06-JAN-03 TO 30-JAN-03 150 MG. 31-JAN-03 300 MG DAILY.
     Route: 048
     Dates: start: 20021220
  2. CAPTOPRIL [Suspect]
     Route: 048
     Dates: start: 19970101
  3. AMLODIPINE [Concomitant]
     Dates: start: 20021025, end: 20031205
  4. FUROSEMIDE [Concomitant]
     Dates: start: 19820101
  5. DIGOXINA [Concomitant]
     Dates: start: 19820101, end: 20030122
  6. REGULAR INSULIN [Concomitant]
     Dates: start: 20020429
  7. AAS [Concomitant]
     Dates: start: 20030131
  8. ACE INHIBITOR [Concomitant]
     Dates: start: 19970101
  9. GLUCOBAY [Concomitant]
     Dates: start: 20030131

REACTIONS (2)
  - DIABETES MELLITUS NON-INSULIN-DEPENDENT [None]
  - RENAL FAILURE ACUTE [None]
